FAERS Safety Report 9242946 (Version 1)
Quarter: 2013Q2

REPORT INFORMATION
  Report Type: Spontaneous
  Country: IT (occurrence: IT)
  Receive Date: 20130420
  Receipt Date: 20130420
  Transmission Date: 20140414
  Serious: Yes (Hospitalization)
  Sender: FDA-Public Use
  Company Number: IT-TEVA-397592ISR

PATIENT
  Age: 60 Year
  Sex: Female

DRUGS (5)
  1. CITALOPRAM [Suspect]
     Indication: DEPRESSION
     Dosage: 16 GTT DAILY;
     Route: 048
     Dates: start: 20130322, end: 20130322
  2. IPAMIX [Concomitant]
     Dosage: 2.5 MG PILLS
  3. XANAX [Concomitant]
     Dosage: 0,75MG/ML
  4. FLUOXETINA CLORIDRATO [Concomitant]
  5. METOPROLOLO TARTRATO [Concomitant]

REACTIONS (5)
  - Malaise [Recovered/Resolved]
  - Tremor [Recovered/Resolved]
  - Dizziness [Recovered/Resolved]
  - Hypokalaemia [Recovered/Resolved]
  - Hypertension [Recovered/Resolved]
